FAERS Safety Report 16534608 (Version 1)
Quarter: 2019Q3

REPORT INFORMATION
  Report Type: Spontaneous
  Country: US (occurrence: US)
  Receive Date: 20190705
  Receipt Date: 20190705
  Transmission Date: 20191004
  Serious: No
  Sender: FDA-Public Use
  Company Number: US-SUNOVION-2019SUN002682

PATIENT

DRUGS (1)
  1. LATUDA [Suspect]
     Active Substance: LURASIDONE HYDROCHLORIDE
     Dosage: UNK
     Route: 048

REACTIONS (19)
  - Loss of personal independence in daily activities [Unknown]
  - Dizziness [Unknown]
  - Hostility [Unknown]
  - Pyrexia [Unknown]
  - Stomatitis [Unknown]
  - Somnolence [Unknown]
  - Abdominal pain upper [Unknown]
  - Tremor [Unknown]
  - Agitation [Unknown]
  - Nausea [Unknown]
  - Vision blurred [Unknown]
  - Restlessness [Unknown]
  - Hunger [Unknown]
  - Confusional state [Unknown]
  - Influenza [Unknown]
  - Oropharyngeal pain [Unknown]
  - Chills [Unknown]
  - Pollakiuria [Unknown]
  - Dry mouth [Unknown]
